FAERS Safety Report 17361788 (Version 1)
Quarter: 2020Q1

REPORT INFORMATION
  Report Type: Spontaneous
  Country: GB (occurrence: GB)
  Receive Date: 20200203
  Receipt Date: 20200203
  Transmission Date: 20200409
  Serious: Yes (Other)
  Sender: FDA-Public Use
  Company Number: GB-JNJFOC-20200131604

PATIENT
  Age: 59 Year
  Sex: Female
  Weight: 78 kg

DRUGS (7)
  1. FULTIUM D3 [Concomitant]
     Active Substance: CHOLECALCIFEROL
     Dosage: 1 DF, QD
     Route: 065
     Dates: start: 20190719
  2. RIVAROXABAN [Suspect]
     Active Substance: RIVAROXABAN
     Indication: PRODUCT USED FOR UNKNOWN INDICATION
     Dosage: 20 MG
     Route: 048
     Dates: start: 20191224
  3. IMIPRAMINE [Concomitant]
     Active Substance: IMIPRAMINE
     Dosage: 4 DF, QD (IN MORNING AND AT NIGHT)
     Route: 065
     Dates: start: 20190509
  4. HYLO-FORTE [Concomitant]
     Active Substance: HYALURONATE SODIUM
     Dosage: AS DIRECTED
     Route: 065
     Dates: start: 20190509
  5. SUMATRIPTAN. [Concomitant]
     Active Substance: SUMATRIPTAN
     Dosage: 1 DF (AT START OF MIGRAINE, IF HEADACHE GO...)
     Route: 065
     Dates: start: 20180618
  6. PROCHLORPERAZINE. [Concomitant]
     Active Substance: PROCHLORPERAZINE
     Indication: DIZZINESS
     Dosage: 1 DF, TID (AS NECESSARY)
     Route: 065
     Dates: start: 20191205, end: 20191215
  7. WARFARIN SODIUM. [Concomitant]
     Active Substance: WARFARIN SODIUM
     Dosage: 2 DF, QD (TAKE IN THE EVENING, TO PREVEN...)
     Route: 065
     Dates: start: 20191231

REACTIONS (2)
  - Nausea [Recovering/Resolving]
  - Dizziness [Recovering/Resolving]

NARRATIVE: CASE EVENT DATE: 20191224
